FAERS Safety Report 22385529 (Version 1)
Quarter: 2023Q2

REPORT INFORMATION
  Report Type: Spontaneous
  Country: US (occurrence: US)
  Receive Date: 20230530
  Receipt Date: 20230530
  Transmission Date: 20230722
  Serious: No
  Sender: FDA-Public Use
  Company Number: US-ABBVIE-5175824

PATIENT
  Age: 37 Year
  Sex: Female

DRUGS (2)
  1. MAVYRET [Suspect]
     Active Substance: GLECAPREVIR\PIBRENTASVIR
     Indication: Hepatitis C
     Route: 048
     Dates: start: 20230331
  2. IMIQUIMOD [Concomitant]
     Active Substance: IMIQUIMOD
     Indication: Product used for unknown indication

REACTIONS (3)
  - Urinary incontinence [Unknown]
  - Urinary tract infection [Unknown]
  - Pollakiuria [Unknown]

NARRATIVE: CASE EVENT DATE: 20230505
